FAERS Safety Report 5626174-2 (Version None)
Quarter: 2008Q1

REPORT INFORMATION
  Report Type: 
  Country: None (occurrence: None)
  Receive Date: 20080214
  Receipt Date: 20080207
  Transmission Date: 20080703
  Serious: Yes (Other)
  Sender: FDA-Public Use
  Company Number: US-GENENTECH-255718

PATIENT
  Age: 61 Year
  Sex: Female

DRUGS (2)
  1. HERCEPTIN [Suspect]
     Indication: BREAST CANCER METASTATIC
     Dosage: 395 MG, Q3W
     Route: 042
     Dates: start: 20050601
  2. XELODA [Concomitant]
     Indication: BREAST CANCER METASTATIC

REACTIONS (3)
  - HISTOPLASMOSIS [None]
  - RESPIRATORY TRACT INFECTION FUNGAL [None]
  - WHITE BLOOD CELL COUNT DECREASED [None]
